FAERS Safety Report 12266619 (Version 2)
Quarter: 2016Q2

REPORT INFORMATION
  Report Type: Spontaneous
  Country: ES (occurrence: ES)
  Receive Date: 20160414
  Receipt Date: 20160414
  Transmission Date: 20160815
  Serious: Yes (Other)
  Sender: FDA-Public Use
  Company Number: ES-AUROBINDO-AUR-APL-2015-08759

PATIENT
  Age: 5 Year
  Sex: Male

DRUGS (7)
  1. PARACETAMOL [Suspect]
     Active Substance: ACETAMINOPHEN
     Indication: PYREXIA
     Dosage: 750 MG, ONCE A DAY
     Route: 065
  2. IBUPROFEN. [Concomitant]
     Active Substance: IBUPROFEN
     Indication: PYREXIA
     Route: 065
  3. HYDROXYZINE [Concomitant]
     Active Substance: HYDROXYZINE\HYDROXYZINE HYDROCHLORIDE
     Indication: PRODUCT USED FOR UNKNOWN INDICATION
     Dosage: THREE DOSES
     Route: 065
  4. PARACETAMOL [Suspect]
     Active Substance: ACETAMINOPHEN
     Indication: PYREXIA
     Dosage: READMINISTERED EVERY 6-8 HOURS
     Route: 065
  5. HYDROXYZINE [Concomitant]
     Active Substance: HYDROXYZINE\HYDROXYZINE HYDROCHLORIDE
     Dosage: THREE DOSES
  6. PARACETAMOL [Suspect]
     Active Substance: ACETAMINOPHEN
     Indication: RASH
     Dosage: 750 MG, UNK
     Route: 042
  7. AZITHROMYCIN ANHYDROUS. [Suspect]
     Active Substance: AZITHROMYCIN ANHYDROUS
     Indication: PRODUCT USED FOR UNKNOWN INDICATION
     Dosage: UNK, THREE DOSES
     Route: 065

REACTIONS (19)
  - Campylobacter infection [Recovered/Resolved]
  - Red cell distribution width increased [Recovered/Resolved]
  - Cutaneous symptom [Recovered/Resolved]
  - Toxic epidermal necrolysis [Recovered/Resolved]
  - Haematocrit decreased [Recovered/Resolved]
  - Pyrexia [Recovered/Resolved]
  - Haematochezia [Recovered/Resolved]
  - Rash [Recovered/Resolved]
  - Condition aggravated [Recovered/Resolved]
  - Epidermal necrosis [Recovered/Resolved]
  - Activated partial thromboplastin time ratio decreased [Recovered/Resolved]
  - Stevens-Johnson syndrome [Recovered/Resolved]
  - Haemoglobin decreased [Recovered/Resolved]
  - Oral mucosa erosion [Recovered/Resolved]
  - Rash maculo-papular [Recovered/Resolved]
  - Gastroenteritis [Recovered/Resolved]
  - Blood creatine phosphokinase increased [Recovered/Resolved]
  - Genital erosion [Recovered/Resolved]
  - Conjunctivitis [Recovered/Resolved]
